FAERS Safety Report 7930579-4 (Version None)
Quarter: 2011Q4

REPORT INFORMATION
  Report Type: 
  Country: None (occurrence: None)
  Receive Date: 20111121
  Receipt Date: 20111117
  Transmission Date: 20120403
  Serious: Yes (Hospitalization, Other)
  Sender: FDA-Public Use
  Company Number: FR-ABBOTT-11P-056-0873212-00

PATIENT
  Sex: Female

DRUGS (9)
  1. ALLOPURINOL [Concomitant]
     Indication: PRODUCT USED FOR UNKNOWN INDICATION
     Route: 048
  2. FENOFIBRATE [Suspect]
     Indication: HYPERCHOLESTEROLAEMIA
     Route: 048
     Dates: end: 20110606
  3. ACARBOSE [Suspect]
     Indication: TYPE 2 DIABETES MELLITUS
     Route: 048
     Dates: end: 20110606
  4. ANTI-VITAMIN K [Suspect]
     Indication: ANTICOAGULANT THERAPY
     Route: 048
  5. ATACAND [Suspect]
     Indication: PRODUCT USED FOR UNKNOWN INDICATION
     Route: 048
     Dates: end: 20110606
  6. CORDARONE [Concomitant]
     Indication: PRODUCT USED FOR UNKNOWN INDICATION
     Route: 048
  7. LASIX [Suspect]
     Indication: HYPERTENSION
     Route: 048
     Dates: end: 20110606
  8. CARDENTIEL [Concomitant]
     Indication: PRODUCT USED FOR UNKNOWN INDICATION
     Route: 048
  9. MINI-SINTROM [Concomitant]
     Indication: PRODUCT USED FOR UNKNOWN INDICATION
     Route: 048

REACTIONS (5)
  - OVERDOSE [None]
  - RENAL FAILURE ACUTE [None]
  - CARDIAC FAILURE [None]
  - METABOLIC ACIDOSIS [None]
  - BLOOD CREATININE INCREASED [None]
